FAERS Safety Report 11229523 (Version 2)
Quarter: 2015Q3

REPORT INFORMATION
  Report Type: Report from Study
  Country: BR (occurrence: BR)
  Receive Date: 20150630
  Receipt Date: 20150710
  Transmission Date: 20151125
  Serious: Yes (Hospitalization, Other)
  Sender: FDA-Public Use
  Company Number: BR-BRISTOL-MYERS SQUIBB COMPANY-BMS-2015-042279

PATIENT
  Sex: Male
  Weight: 63 kg

DRUGS (2)
  1. CETUXIMAB [Suspect]
     Active Substance: CETUXIMAB
     Indication: HEAD AND NECK CANCER
     Dosage: 400 MG, Q3MO
     Route: 065
     Dates: start: 201407
  2. DOCETAXEL. [Concomitant]
     Active Substance: DOCETAXEL
     Indication: PRODUCT USED FOR UNKNOWN INDICATION
     Dosage: 250 MG, Q3MO
     Route: 065

REACTIONS (7)
  - White blood cell count decreased [Unknown]
  - Skin reaction [Recovered/Resolved]
  - Blood sodium decreased [Unknown]
  - Weight decreased [Recovering/Resolving]
  - Gastrostomy [Unknown]
  - Fatigue [Unknown]
  - Aphasia [Unknown]

NARRATIVE: CASE EVENT DATE: 2014
